FAERS Safety Report 10337776 (Version 3)
Quarter: 2014Q3

REPORT INFORMATION
  Report Type: Spontaneous
  Country: US (occurrence: US)
  Receive Date: 20140724
  Receipt Date: 20140822
  Transmission Date: 20150326
  Serious: Yes (Other)
  Sender: FDA-Public Use
  Company Number: US-BRISTOL-MYERS SQUIBB COMPANY-21204433

PATIENT
  Age: 81 Year
  Sex: Male
  Weight: 86.62 kg

DRUGS (17)
  1. COREG [Concomitant]
     Active Substance: CARVEDILOL
  2. LANTUS [Concomitant]
     Active Substance: INSULIN GLARGINE
     Indication: TYPE 2 DIABETES MELLITUS
  3. DIOVAN [Concomitant]
     Active Substance: VALSARTAN
  4. AMBIEN [Concomitant]
     Active Substance: ZOLPIDEM TARTRATE
  5. GABAPENTIN. [Concomitant]
     Active Substance: GABAPENTIN
  6. NEXIUM [Concomitant]
     Active Substance: ESOMEPRAZOLE MAGNESIUM
  7. FLONASE [Concomitant]
     Active Substance: FLUTICASONE PROPIONATE
  8. EVOXAC [Concomitant]
     Active Substance: CEVIMELINE HYDROCHLORIDE
  9. CLARITIN [Concomitant]
     Active Substance: LORATADINE
  10. LIPITOR [Concomitant]
     Active Substance: ATORVASTATIN CALCIUM
  11. ZOLPIDEM [Concomitant]
     Active Substance: ZOLPIDEM\ZOLPIDEM TARTRATE
  12. ALLOPURINOL. [Concomitant]
     Active Substance: ALLOPURINOL
  13. NORVASC [Concomitant]
     Active Substance: AMLODIPINE BESYLATE
  14. BYDUREON [Suspect]
     Active Substance: EXENATIDE
     Indication: TYPE 2 DIABETES MELLITUS
     Dosage: ONGOING
     Route: 058
     Dates: start: 201406
  15. AVODART [Concomitant]
     Active Substance: DUTASTERIDE
  16. LEVOTHYROXINE [Concomitant]
     Active Substance: LEVOTHYROXINE
  17. CALCITRATE [Concomitant]

REACTIONS (5)
  - Injection site nodule [Recovering/Resolving]
  - Cataract [Unknown]
  - Injection site swelling [Not Recovered/Not Resolved]
  - Blood glucose fluctuation [Unknown]
  - Weight increased [Unknown]

NARRATIVE: CASE EVENT DATE: 2014
